FAERS Safety Report 17986530 (Version 1)
Quarter: 2020Q3

REPORT INFORMATION
  Report Type: Spontaneous
  Country: IT (occurrence: IT)
  Receive Date: 20200707
  Receipt Date: 20200707
  Transmission Date: 20201103
  Serious: Yes (Other)
  Sender: FDA-Public Use
  Company Number: IT-SUN PHARMACEUTICAL INDUSTRIES LTD-2020RR-252471

PATIENT
  Age: 33 Year
  Sex: Male

DRUGS (4)
  1. AZITHROMYCIN ANHYDROUS. [Suspect]
     Active Substance: AZITHROMYCIN ANHYDROUS
     Indication: CORONAVIRUS INFECTION
     Dosage: 500 MILLIGRAM, DAILY
     Route: 048
     Dates: start: 20200420, end: 20200430
  2. CEFIXIME. [Suspect]
     Active Substance: CEFIXIME
     Indication: INTERSTITIAL LUNG DISEASE
     Dosage: 400 MILLIGRAM, DAILY
     Route: 048
     Dates: start: 20200420, end: 20200430
  3. DELTACORTENE 5 MG COMPRESSE [Suspect]
     Active Substance: PREDNISONE
     Indication: CORONAVIRUS INFECTION
     Dosage: 5 MILLIGRAM, DAILY
     Route: 048
     Dates: start: 20200420, end: 20200430
  4. PLAQUENIL [Suspect]
     Active Substance: HYDROXYCHLOROQUINE SULFATE
     Indication: CORONAVIRUS INFECTION
     Dosage: 400 MILLIGRAM, DAILY
     Route: 048
     Dates: start: 20200420, end: 20200430

REACTIONS (2)
  - Urticaria [Recovered/Resolved]
  - Off label use [Recovered/Resolved]

NARRATIVE: CASE EVENT DATE: 20200430
